FAERS Safety Report 9970152 (Version 1)
Quarter: 2014Q1

REPORT INFORMATION
  Report Type: Spontaneous
  Country: US (occurrence: None)
  Receive Date: 20140304
  Receipt Date: 20140304
  Transmission Date: 20141002
  Serious: No
  Sender: FDA-Public Use
  Company Number: B0972016A

PATIENT
  Age: 30 Year
  Sex: Female

DRUGS (1)
  1. PAROXETINE HYDROCHLORIDE [Suspect]
     Dosage: ORAL , ALTERNATIVE DAYS
     Route: 048

REACTIONS (1)
  - Foetal exposure during pregnancy [None]
